FAERS Safety Report 22308092 (Version 1)
Quarter: 2023Q2

REPORT INFORMATION
  Report Type: Report from Study
  Country: US (occurrence: US)
  Receive Date: 20230511
  Receipt Date: 20230511
  Transmission Date: 20230722
  Serious: Yes (Other)
  Sender: FDA-Public Use
  Company Number: US-TAKEDA-2022TUS071231

PATIENT
  Sex: Male

DRUGS (1)
  1. MARIBAVIR [Suspect]
     Active Substance: MARIBAVIR
     Indication: Acute lymphocytic leukaemia
     Dosage: 400 MILLIGRAM, BID
     Route: 048
     Dates: start: 20220908

REACTIONS (2)
  - Acute lymphocytic leukaemia [Unknown]
  - COVID-19 [Unknown]
